FAERS Safety Report 9659575 (Version 1)
Quarter: 2013Q4

REPORT INFORMATION
  Report Type: Report from Study
  Country: US (occurrence: US)
  Receive Date: 20131031
  Receipt Date: 20131031
  Transmission Date: 20140711
  Serious: Yes (Hospitalization)
  Sender: FDA-Public Use
  Company Number: US-ABBVIE-13P-163-1161350-00

PATIENT
  Age: 55 Year
  Sex: Male
  Weight: 81.27 kg

DRUGS (8)
  1. HUMIRA [Suspect]
     Indication: PSORIASIS
     Dosage: LOADING DOSE DONE
     Dates: start: 2009, end: 2009
  2. HUMIRA [Suspect]
     Indication: PSORIATIC ARTHROPATHY
     Dosage: STARTED ONE WEEK AFTER INITIAL DOSE
     Dates: start: 2009, end: 201306
  3. ASPIRIN [Concomitant]
     Indication: CARDIAC DISORDER
  4. LISINOPRIL [Concomitant]
     Indication: HYPERTENSION
  5. BISOPROLOL [Concomitant]
     Indication: HYPERTENSION
  6. ATORVASTATIN [Concomitant]
     Indication: BLOOD CHOLESTEROL INCREASED
  7. ALLOPURINOL [Concomitant]
     Indication: GOUT
  8. VITAMIN C [Concomitant]
     Indication: VITAMIN SUPPLEMENTATION

REACTIONS (11)
  - Arthritis [Recovering/Resolving]
  - Staphylococcal infection [Recovering/Resolving]
  - Staphylococcal infection [Unknown]
  - Arthritis [Not Recovered/Not Resolved]
  - Arthralgia [Recovered/Resolved]
  - Pain in extremity [Not Recovered/Not Resolved]
  - Joint swelling [Recovering/Resolving]
  - Erythema [Recovering/Resolving]
  - Erythema [Recovered/Resolved]
  - Psoriatic arthropathy [Not Recovered/Not Resolved]
  - Hypertension [Recovered/Resolved]
